FAERS Safety Report 8536981-4 (Version None)
Quarter: 2012Q3

REPORT INFORMATION
  Report Type: 
  Country: None (occurrence: None)
  Receive Date: 20120725
  Receipt Date: 20120723
  Transmission Date: 20120928
  Serious: Yes (Other)
  Sender: FDA-Public Use
  Company Number: US-ABBOTT-12P-163-0937332-00

PATIENT
  Age: 30 Year
  Sex: Female

DRUGS (2)
  1. TRIZIVIR [Suspect]
     Indication: ANTIRETROVIRAL THERAPY
     Dosage: 1 TAB/CAP DAILY
     Route: 048
  2. KALETRA [Suspect]
     Indication: ANTIRETROVIRAL THERAPY
     Route: 048

REACTIONS (1)
  - ABORTION INDUCED [None]
